FAERS Safety Report 8227337-2 (Version None)
Quarter: 2012Q1

REPORT INFORMATION
  Report Type: 
  Country: None (occurrence: None)
  Receive Date: 20120322
  Receipt Date: 20120320
  Transmission Date: 20120608
  Serious: Yes (Death)
  Sender: FDA-Public Use
  Company Number: PHHY2012HU021090

PATIENT
  Age: 49 Year
  Sex: Female

DRUGS (1)
  1. LETROZOLE [Suspect]
     Indication: BREAST CANCER
     Dosage: 2.5 MG, DAILY
     Route: 048
     Dates: start: 20070901

REACTIONS (3)
  - RESPIRATORY FAILURE [None]
  - COMPLETED SUICIDE [None]
  - DEPRESSION [None]
